FAERS Safety Report 6958342-1 (Version None)
Quarter: 2010Q3

REPORT INFORMATION
  Report Type: 
  Country: None (occurrence: None)
  Receive Date: 20100831
  Receipt Date: 20100826
  Transmission Date: 20110219
  Serious: Yes (Hospitalization)
  Sender: FDA-Public Use
  Company Number: Z0004590A

PATIENT
  Sex: Female
  Weight: 69.4 kg

DRUGS (1)
  1. CHLORAMBUCIL [Suspect]
     Route: 048
     Dates: start: 20100323

REACTIONS (3)
  - ANAEMIA [None]
  - DYSPNOEA [None]
  - THROMBOCYTOPENIA [None]
